FAERS Safety Report 15701048 (Version 1)
Quarter: 2018Q4

REPORT INFORMATION
  Report Type: Spontaneous
  Country: US (occurrence: US)
  Receive Date: 20181207
  Receipt Date: 20181207
  Transmission Date: 20190205
  Serious: No
  Sender: FDA-Public Use
  Company Number: US-TEVA-2018-US-982338

PATIENT
  Sex: Male

DRUGS (1)
  1. CARVETAB [Suspect]
     Active Substance: CARVEDILOL
     Route: 065
     Dates: start: 20181126

REACTIONS (5)
  - Blood pressure increased [Unknown]
  - Feeling abnormal [Unknown]
  - Condition aggravated [Unknown]
  - Headache [Unknown]
  - Gluten sensitivity [Unknown]

NARRATIVE: CASE EVENT DATE: 20181126
